FAERS Safety Report 19773217 (Version 1)
Quarter: 2021Q3

REPORT INFORMATION
  Report Type: Spontaneous
  Country: AU (occurrence: AU)
  Receive Date: 20210901
  Receipt Date: 20210901
  Transmission Date: 20211014
  Serious: Yes (Hospitalization)
  Sender: FDA-Public Use
  Company Number: AU-JNJFOC-20210860282

PATIENT
  Age: 10 Day
  Sex: Male
  Weight: 3.5 kg

DRUGS (1)
  1. PARACETAMOL [Suspect]
     Active Substance: ACETAMINOPHEN
     Indication: PRODUCT USED FOR UNKNOWN INDICATION
     Dosage: FOUR DOSES OF 200 MG (56 MG/KG) OF PARACETAMOL OVER 24 HOURS (224MG/KG TOTAL).
     Route: 065

REACTIONS (4)
  - Hyperbilirubinaemia [Not Recovered/Not Resolved]
  - Gamma-glutamyltransferase increased [Unknown]
  - Accidental overdose [Unknown]
  - Alanine aminotransferase increased [Not Recovered/Not Resolved]
